FAERS Safety Report 4784019-7 (Version None)
Quarter: 2005Q3

REPORT INFORMATION
  Report Type: 
  Country: None (occurrence: None)
  Receive Date: 20050927
  Receipt Date: 20050609
  Transmission Date: 20060218
  Serious: No
  Sender: FDA-Public Use
  Company Number: USA050188520

PATIENT
  Age: 51 Year
  Sex: Male

DRUGS (6)
  1. STRATTERA [Suspect]
     Indication: ATTENTION DEFICIT/HYPERACTIVITY DISORDER
     Dosage: 80 MG
     Dates: start: 20040101
  2. SYNTHROID [Concomitant]
  3. ZYLOPRIM [Concomitant]
  4. VICODIN [Concomitant]
  5. IBUPROFEN [Concomitant]
  6. ACCOLATE [Concomitant]

REACTIONS (2)
  - CYST [None]
  - DIARRHOEA [None]
